FAERS Safety Report 5654607-4 (Version None)
Quarter: 2008Q1

REPORT INFORMATION
  Report Type: 
  Country: None (occurrence: None)
  Receive Date: 20080307
  Receipt Date: 20080225
  Transmission Date: 20080703
  Serious: Yes (Other)
  Sender: FDA-Public Use
  Company Number: US-JNJFOC-20080205801

PATIENT
  Age: 5 Year
  Sex: Female

DRUGS (1)
  1. DITROPAN [Suspect]
     Indication: ENURESIS
     Route: 065

REACTIONS (1)
  - STRABISMUS [None]
